FAERS Safety Report 7651160-0 (Version None)
Quarter: 2011Q3

REPORT INFORMATION
  Report Type: 
  Country: None (occurrence: None)
  Receive Date: 20110802
  Receipt Date: 20110722
  Transmission Date: 20111222
  Serious: Yes (Other)
  Sender: FDA-Public Use
  Company Number: GB-JNJFOC-20110710445

PATIENT
  Sex: Female

DRUGS (3)
  1. STELARA [Suspect]
     Indication: PSORIASIS
     Route: 058
     Dates: start: 20110428
  2. STELARA [Suspect]
     Route: 058
  3. STELARA [Suspect]
     Route: 058
     Dates: start: 20110722

REACTIONS (2)
  - DYSPNOEA [None]
  - CHEST DISCOMFORT [None]
